FAERS Safety Report 25435188 (Version 1)
Quarter: 2025Q2

REPORT INFORMATION
  Report Type: Report from Study
  Country: US (occurrence: US)
  Receive Date: 20250613
  Receipt Date: 20250613
  Transmission Date: 20250717
  Serious: Yes (Other)
  Sender: BAUSCH AND LOMB
  Company Number: US-BAUSCHBL-2025BNL010487

PATIENT
  Age: 65 Year
  Sex: Female

DRUGS (1)
  1. MIEBO [Suspect]
     Active Substance: PERFLUOROHEXYLOCTANE
     Indication: Product used for unknown indication
     Dosage: MUST SEE PACKAGE INSERT FOR ADMIN INSTRUCTIONS
     Route: 047
     Dates: start: 20240531

REACTIONS (3)
  - Blindness [Unknown]
  - Vision blurred [Unknown]
  - Therapy interrupted [Unknown]
